FAERS Safety Report 20063897 (Version 1)
Quarter: 2021Q4

REPORT INFORMATION
  Report Type: Spontaneous
  Country: OM (occurrence: OM)
  Receive Date: 20211112
  Receipt Date: 20211112
  Transmission Date: 20220303
  Serious: Yes (Life-Threatening, Hospitalization, Other)
  Sender: FDA-Public Use
  Company Number: OM-MLMSERVICE-20211028-3191475-1

PATIENT
  Age: 29 Year
  Sex: Female

DRUGS (2)
  1. QUETIAPINE [Suspect]
     Active Substance: QUETIAPINE
     Indication: Delirium
     Dosage: IN THE WARD, THE DOSE OF QUETIAPINE WAS DOUBLED.
  2. DEXAMETHASONE [Concomitant]
     Active Substance: DEXAMETHASONE
     Indication: COVID-19

REACTIONS (3)
  - Oliguria [Recovering/Resolving]
  - Neuroleptic malignant syndrome [Recovering/Resolving]
  - Maternal exposure during pregnancy [Unknown]
